FAERS Safety Report 11865563 (Version 1)
Quarter: 2015Q4

REPORT INFORMATION
  Report Type: Spontaneous
  Country: DE (occurrence: DE)
  Receive Date: 20151223
  Receipt Date: 20151223
  Transmission Date: 20160305
  Serious: Yes (Hospitalization)
  Sender: FDA-Public Use
  Company Number: DE-TEVA-620597GER

PATIENT
  Age: 55 Year
  Sex: Female

DRUGS (1)
  1. TRIMIPRAMIN-RATIOPHARM 100 MG TABLETTEN [Suspect]
     Active Substance: TRIMIPRAMINE MALEATE
     Indication: MENTAL DISORDER
     Dosage: 150 MILLIGRAM DAILY;
     Dates: start: 201511

REACTIONS (1)
  - Pneumonia [Unknown]

NARRATIVE: CASE EVENT DATE: 201511
